FAERS Safety Report 14802938 (Version 2)
Quarter: 2018Q3

REPORT INFORMATION
  Report Type: Report from Study
  Country: US (occurrence: US)
  Receive Date: 20180424
  Receipt Date: 20180709
  Transmission Date: 20181010
  Serious: Yes (Hospitalization)
  Sender: FDA-Public Use
  Company Number: PHHY2018US071647

PATIENT
  Age: 1 Year
  Sex: Female
  Weight: 10 kg

DRUGS (2)
  1. GSK2118436 [Suspect]
     Active Substance: DABRAFENIB
     Indication: NEUROBLASTOMA
     Dosage: 27 MG, UNK
     Route: 048
     Dates: start: 20171221, end: 20180704
  2. MEKINIST [Suspect]
     Active Substance: TRAMETINIB DIMETHYL SULFOXIDE
     Indication: NEUROBLASTOMA
     Dosage: 0.3 MG, UNK
     Route: 048
     Dates: start: 20171221, end: 20180704

REACTIONS (11)
  - Cough [Unknown]
  - Nausea [Recovered/Resolved]
  - Fatigue [Not Recovered/Not Resolved]
  - Pyrexia [Recovering/Resolving]
  - Sneezing [Unknown]
  - Hypoalbuminaemia [Recovering/Resolving]
  - Tachycardia [Recovered/Resolved]
  - Teething [Unknown]
  - Vomiting [Recovered/Resolved]
  - Decreased appetite [Not Recovered/Not Resolved]
  - Chills [Unknown]

NARRATIVE: CASE EVENT DATE: 20180413
